FAERS Safety Report 6159819-1 (Version None)
Quarter: 2009Q2

REPORT INFORMATION
  Report Type: 
  Country: None (occurrence: None)
  Receive Date: 20090420
  Receipt Date: 20090409
  Transmission Date: 20091009
  Serious: Yes (Other)
  Sender: FDA-Public Use
  Company Number: AU-BIOGENIDEC-2009BI011371

PATIENT
  Age: 37 Year
  Sex: Female

DRUGS (1)
  1. TYSABRI [Suspect]
     Indication: RELAPSING-REMITTING MULTIPLE SCLEROSIS
     Route: 030
     Dates: start: 20080603, end: 20090407

REACTIONS (9)
  - AFFECT LABILITY [None]
  - ANXIETY [None]
  - COGNITIVE DISORDER [None]
  - CONFUSIONAL STATE [None]
  - HYPOPHAGIA [None]
  - MEMORY IMPAIRMENT [None]
  - PROCEDURAL HEADACHE [None]
  - PROCEDURAL NAUSEA [None]
  - VOMITING [None]
